FAERS Safety Report 17072258 (Version 1)
Quarter: 2019Q4

REPORT INFORMATION
  Report Type: Spontaneous
  Country: US (occurrence: US)
  Receive Date: 20191125
  Receipt Date: 20191125
  Transmission Date: 20200122
  Serious: No
  Sender: FDA-Public Use
  Company Number: US-ZYLA LIFE SCIENCES-US-2019EGA001457

PATIENT
  Age: 50 Year
  Sex: Female

DRUGS (1)
  1. ZORVOLEX [Suspect]
     Active Substance: DICLOFENAC
     Indication: PRODUCT USED FOR UNKNOWN INDICATION
     Dosage: 35 MG, QD
     Route: 048
     Dates: start: 20190523, end: 20190603

REACTIONS (5)
  - Gluten sensitivity [Unknown]
  - Pruritus [Recovered/Resolved]
  - Abdominal discomfort [Unknown]
  - Skin reaction [Unknown]
  - Headache [Unknown]

NARRATIVE: CASE EVENT DATE: 201905
